FAERS Safety Report 9306090 (Version 1)
Quarter: 2013Q2

REPORT INFORMATION
  Report Type: Spontaneous
  Country: US (occurrence: US)
  Receive Date: 20130523
  Receipt Date: 20130523
  Transmission Date: 20140414
  Serious: No
  Sender: FDA-Public Use
  Company Number: US-PFIZER INC-2013157316

PATIENT
  Sex: Female

DRUGS (3)
  1. VENLAFAXINE HCL [Suspect]
     Dosage: 75 MG, UNK
  2. VENLAFAXINE HCL [Suspect]
     Dosage: 37.5 MG, UNK
  3. VENLAFAXINE HCL [Suspect]
     Dosage: UNK

REACTIONS (4)
  - Nausea [Not Recovered/Not Resolved]
  - Vomiting [Not Recovered/Not Resolved]
  - Malaise [Not Recovered/Not Resolved]
  - Feeling abnormal [Not Recovered/Not Resolved]
